FAERS Safety Report 9736700 (Version 1)
Quarter: 2013Q4

REPORT INFORMATION
  Report Type: Spontaneous
  Country: US (occurrence: US)
  Receive Date: 20131206
  Receipt Date: 20131206
  Transmission Date: 20140711
  Serious: No
  Sender: FDA-Public Use
  Company Number: US-GILEAD-2009-0023889

PATIENT
  Sex: Female
  Weight: 98.43 kg

DRUGS (10)
  1. LETAIRIS [Suspect]
     Indication: PULMONARY ARTERIAL HYPERTENSION
     Route: 048
     Dates: start: 20090808
  2. METOPROLOL [Concomitant]
  3. ADVAIR [Concomitant]
  4. SPIRIVA [Concomitant]
  5. OXYGEN [Concomitant]
  6. COD LIVER OIL [Concomitant]
  7. CENTRUM CHEWABLE [Concomitant]
  8. BENADRYL 1% CREAM [Concomitant]
  9. OMEPRAZOLE [Concomitant]
  10. HYDROCORTISONE [Concomitant]

REACTIONS (1)
  - Headache [Unknown]
